FAERS Safety Report 9492620 (Version 1)
Quarter: 2013Q3

REPORT INFORMATION
  Report Type: Spontaneous
  Country: TR (occurrence: TR)
  Receive Date: 20130830
  Receipt Date: 20130830
  Transmission Date: 20140515
  Serious: Yes (Other)
  Sender: FDA-Public Use
  Company Number: TR-ABBOTT-13X-161-1140935-00

PATIENT
  Age: 45 Year
  Sex: Female

DRUGS (4)
  1. VALPROIC ACID [Suspect]
     Indication: GRAND MAL CONVULSION
  2. CARBAMAZEPINE [Suspect]
     Indication: GRAND MAL CONVULSION
  3. ARIPIPRAZOLE [Suspect]
     Indication: EPILEPTIC PSYCHOSIS
  4. LAMOTRIGINE [Suspect]
     Indication: GRAND MAL CONVULSION

REACTIONS (11)
  - Epileptic psychosis [Recovered/Resolved]
  - Suicide attempt [Unknown]
  - Automatism [Unknown]
  - Stereotypy [Unknown]
  - Irritability [Unknown]
  - Abnormal behaviour [Unknown]
  - Hallucination, visual [Recovered/Resolved]
  - Hallucination, auditory [Recovered/Resolved]
  - Drug ineffective [Unknown]
  - Thrombocytopenia [Unknown]
  - Tremor [Unknown]
